FAERS Safety Report 24611084 (Version 2)
Quarter: 2024Q4

REPORT INFORMATION
  Report Type: Spontaneous
  Country: JP (occurrence: JP)
  Receive Date: 20241113
  Receipt Date: 20241115
  Transmission Date: 20250115
  Serious: Yes (Hospitalization)
  Sender: ROCHE
  Company Number: JP-CHUGAI-2024038918

PATIENT
  Age: 76 Year
  Sex: Female

DRUGS (1)
  1. ACTEMRA [Suspect]
     Active Substance: TOCILIZUMAB
     Indication: Rheumatoid arthritis
     Dosage: 360 MILLIGRAM/4 WEEKS
     Route: 042
     Dates: start: 2008

REACTIONS (3)
  - Calcinosis [Unknown]
  - Escherichia infection [Unknown]
  - Drug eruption [Unknown]

NARRATIVE: CASE EVENT DATE: 20240101
